FAERS Safety Report 21689405 (Version 7)
Quarter: 2024Q2

REPORT INFORMATION
  Report Type: Spontaneous
  Country: US (occurrence: US)
  Receive Date: 20221206
  Receipt Date: 20240408
  Transmission Date: 20240715
  Serious: Yes (Other)
  Sender: FDA-Public Use
  Company Number: US-PFIZER INC-PV202200118034

PATIENT
  Age: 57 Year
  Sex: Female

DRUGS (17)
  1. XELJANZ XR [Suspect]
     Active Substance: TOFACITINIB CITRATE
     Dosage: 11 MG
  2. DILTIAZEM [Concomitant]
     Active Substance: DILTIAZEM
     Dosage: UNK
  3. ZYRTEC [Concomitant]
     Active Substance: CETIRIZINE HYDROCHLORIDE
     Dosage: 1.5 DF, DAILY
  4. ALBUTEROL [Concomitant]
     Active Substance: ALBUTEROL
  5. BRIVIACT [Concomitant]
     Active Substance: BRIVARACETAM
  6. BUMETANIDE [Concomitant]
     Active Substance: BUMETANIDE
  7. CALCIUM [Concomitant]
     Active Substance: CALCIUM
  8. ELIQUIS [Concomitant]
     Active Substance: APIXABAN
  9. GABAPENTIN [Concomitant]
     Active Substance: GABAPENTIN
  10. HYDROCODONE [Concomitant]
     Active Substance: HYDROCODONE
  11. LYRICA [Concomitant]
     Active Substance: PREGABALIN
  12. MIRAPEX [Concomitant]
     Active Substance: PRAMIPEXOLE DIHYDROCHLORIDE
  13. NEXIUM I.V. [Concomitant]
     Active Substance: ESOMEPRAZOLE SODIUM
  14. OMEPRAZOLE [Concomitant]
     Active Substance: OMEPRAZOLE
  15. PHENERGAN [Concomitant]
     Active Substance: PROMETHAZINE HYDROCHLORIDE
  16. VITAMIN B12 [Concomitant]
     Active Substance: CYANOCOBALAMIN
  17. TIZANIDINE [Concomitant]
     Active Substance: TIZANIDINE

REACTIONS (5)
  - Cardiac pacemaker insertion [Recovering/Resolving]
  - COVID-19 [Unknown]
  - Bronchitis [Unknown]
  - Nausea [Unknown]
  - Fungal infection [Unknown]

NARRATIVE: CASE EVENT DATE: 20221101
